FAERS Safety Report 19957164 (Version 1)
Quarter: 2021Q4

REPORT INFORMATION
  Report Type: Spontaneous
  Country: US (occurrence: US)
  Receive Date: 20211014
  Receipt Date: 20211014
  Transmission Date: 20220303
  Serious: No
  Sender: FDA-Public Use
  Company Number: US-WALMART PREMIER BRANDS OF AMERICA-2120568

PATIENT
  Age: 69 Year
  Sex: Male

DRUGS (4)
  1. MAXIMUM STRENGTH WART REMOVER WITH SALICYLIC ACID [Suspect]
     Active Substance: SALICYLIC ACID
     Route: 061
     Dates: start: 20210616, end: 20210620
  2. ANTIBIOTIC OINTMENT [Concomitant]
     Active Substance: NEOMYCIN SULFATE
     Dates: start: 20210624
  3. BANDAGE [Concomitant]
     Active Substance: BENZALKONIUM CHLORIDE
     Dates: start: 20210624
  4. BACITRACIN [Concomitant]
     Active Substance: BACITRACIN
     Dates: start: 20210624

REACTIONS (1)
  - Chemical burn [Recovering/Resolving]

NARRATIVE: CASE EVENT DATE: 20210618
